FAERS Safety Report 7980746-9 (Version None)
Quarter: 2011Q4

REPORT INFORMATION
  Report Type: 
  Country: None (occurrence: None)
  Receive Date: 20111214
  Receipt Date: 20111201
  Transmission Date: 20120403
  Serious: Yes (Hospitalization)
  Sender: FDA-Public Use
  Company Number: US-ELI_LILLY_AND_COMPANY-US201011006039

PATIENT
  Sex: Female

DRUGS (7)
  1. CALCIUM [Concomitant]
  2. VITAMIN D [Concomitant]
  3. FORTEO [Suspect]
     Indication: OSTEOPOROSIS
     Dosage: 20 UG, DAILY (1/D)
     Route: 065
     Dates: start: 20101001
  4. ZOCOR [Concomitant]
  5. FORTEO [Suspect]
     Dosage: 20 UG, DAILY (1/D)
     Route: 065
  6. FORTEO [Suspect]
     Dosage: 20 UG, DAILY (1/D)
     Route: 065
  7. FORTEO [Suspect]
     Dosage: 20 UG, QD
     Dates: end: 20111118

REACTIONS (19)
  - BACK PAIN [None]
  - MUSCLE DISORDER [None]
  - CYSTITIS [None]
  - FATIGUE [None]
  - EXERCISE TOLERANCE DECREASED [None]
  - HYPOVITAMINOSIS [None]
  - CHEST PAIN [None]
  - CARDIAC DISORDER [None]
  - IRRITABILITY [None]
  - BLOOD PRESSURE INCREASED [None]
  - HYPERSOMNIA [None]
  - NERVOUS SYSTEM DISORDER [None]
  - MUSCLE SPASMS [None]
  - PAIN [None]
  - FEELING ABNORMAL [None]
  - ARTHRALGIA [None]
  - MEMORY IMPAIRMENT [None]
  - PERSONALITY CHANGE [None]
  - GASTROINTESTINAL DISORDER [None]
